FAERS Safety Report 4768178-8 (Version None)
Quarter: 2005Q3

REPORT INFORMATION
  Report Type: 
  Country: None (occurrence: None)
  Receive Date: 20050908
  Receipt Date: 20050808
  Transmission Date: 20060218
  Serious: Yes (Hospitalization)
  Sender: FDA-Public Use
  Company Number: A03200502411

PATIENT
  Age: 60 Year
  Sex: Male
  Weight: 54.4316 kg

DRUGS (7)
  1. ELOXATIN [Suspect]
     Indication: NEOPLASM MALIGNANT
     Dosage: 110 MG OTHER - INTRAVENOUS NOS
     Route: 042
     Dates: start: 20050628, end: 20050628
  2. FLUOROURACIL [Concomitant]
  3. LEUCOVORIN [Concomitant]
  4. PALONOSETRON [Concomitant]
  5. DEXAMETHASONE [Concomitant]
  6. MAGNESIUM [Concomitant]
  7. CALCIUM GLUCONATE [Concomitant]

REACTIONS (1)
  - CHEST PAIN [None]
